FAERS Safety Report 11794680 (Version 1)
Quarter: 2015Q4

REPORT INFORMATION
  Report Type: Spontaneous
  Country: US (occurrence: US)
  Receive Date: 20151202
  Receipt Date: 20151202
  Transmission Date: 20160305
  Serious: Yes (Hospitalization, Other)
  Sender: FDA-Public Use
  Company Number: US-SMITH AND NEPHEW, INC-2015SMT00566

PATIENT
  Age: 59 Year
  Sex: Male
  Weight: 88.44 kg

DRUGS (3)
  1. REGRANEX [Suspect]
     Active Substance: BECAPLERMIN
     Indication: SKIN ULCER
     Dosage: UNK UNK, 1X/DAY
     Route: 061
     Dates: start: 20151001, end: 20151103
  2. UNSPECIFIED DIABETES MEDICATION(S) [Concomitant]
  3. UNSPECIFIED HIGH BLOOD PRESSURE MEDICATION(S) [Concomitant]

REACTIONS (3)
  - Pyrexia [Recovering/Resolving]
  - Osteomyelitis [Recovering/Resolving]
  - Malaise [Recovering/Resolving]

NARRATIVE: CASE EVENT DATE: 201510
